FAERS Safety Report 19392934 (Version 3)
Quarter: 2021Q3

REPORT INFORMATION
  Report Type: Spontaneous
  Country: DE (occurrence: DE)
  Receive Date: 20210609
  Receipt Date: 20210716
  Transmission Date: 20211014
  Serious: Yes (Life-Threatening, Other)
  Sender: FDA-Public Use
  Company Number: DE-AUROBINDO-AUR-APL-2021-006139

PATIENT
  Sex: Female
  Weight: 78 kg

DRUGS (2)
  1. LETROZOLE. [Suspect]
     Active Substance: LETROZOLE
     Indication: BREAST CANCER METASTATIC
     Dosage: 2.5 MILLIGRAM, ONCE A DAY
     Route: 048
     Dates: start: 20201103
  2. KISQALI [Suspect]
     Active Substance: RIBOCICLIB
     Indication: BREAST CANCER METASTATIC
     Dosage: 600 MILLIGRAM, ONCE A DAY (21 DAYS INTAKE, THAN 7 DAYS WITHOUT THERAPY)
     Route: 048
     Dates: start: 20201103

REACTIONS (6)
  - Fatigue [Not Recovered/Not Resolved]
  - Steatohepatitis [Not Recovered/Not Resolved]
  - Aspartate aminotransferase increased [Unknown]
  - Hepatobiliary disease [Recovering/Resolving]
  - Neutropenia [Not Recovered/Not Resolved]
  - Alanine aminotransferase increased [Unknown]

NARRATIVE: CASE EVENT DATE: 20201201
